FAERS Safety Report 12650722 (Version 1)
Quarter: 2016Q3

REPORT INFORMATION
  Report Type: Spontaneous
  Country: US (occurrence: US)
  Receive Date: 20160815
  Receipt Date: 20160815
  Transmission Date: 20161109
  Serious: No
  Sender: FDA-Public Use
  Company Number: US-JAZZ-2016-US-004649

PATIENT
  Sex: Female

DRUGS (30)
  1. METAMUCIL [Concomitant]
     Active Substance: PLANTAGO SEED
  2. MIRALAX [Concomitant]
     Active Substance: POLYETHYLENE GLYCOL 3350
  3. NALTREXONE [Concomitant]
     Active Substance: NALTREXONE
  4. METHYLCOBALAMIN. [Concomitant]
     Active Substance: METHYLCOBALAMIN
  5. RESTASIS [Concomitant]
     Active Substance: CYCLOSPORINE
  6. OMEGA 3 [Concomitant]
     Active Substance: OMEGA-3 FATTY ACIDS
  7. XYREM [Suspect]
     Active Substance: SODIUM OXYBATE
     Dosage: 2.25 G, TID
     Route: 048
     Dates: start: 201101, end: 2011
  8. XYREM [Suspect]
     Active Substance: SODIUM OXYBATE
     Dosage: 3.75 G, BID
     Route: 048
     Dates: start: 201209, end: 201211
  9. ESTRING [Concomitant]
     Active Substance: ESTRADIOL
  10. DOXEPIN [Concomitant]
     Active Substance: DOXEPIN
  11. XYREM [Suspect]
     Active Substance: SODIUM OXYBATE
     Indication: SLEEP DISORDER
     Dosage: 3 G, BID
     Route: 048
     Dates: start: 200901, end: 200902
  12. MAGNESIUM [Concomitant]
     Active Substance: MAGNESIUM
  13. VITAMIN D3 [Concomitant]
     Active Substance: CHOLECALCIFEROL
  14. PROBIOTIC [Concomitant]
     Active Substance: PROBIOTICS NOS
  15. XYREM [Suspect]
     Active Substance: SODIUM OXYBATE
     Dosage: 4.5 G, BID
     Route: 048
     Dates: start: 201308
  16. GLUTATHIONE [Concomitant]
     Active Substance: GLUTATHIONE
  17. SALT [Concomitant]
     Active Substance: SODIUM CHLORIDE
  18. FLAXSEED [Concomitant]
     Active Substance: FLAX SEED
  19. IMMUNOVIR [Concomitant]
  20. BIOTIN [Concomitant]
     Active Substance: BIOTIN
  21. FISH OIL [Concomitant]
     Active Substance: FISH OIL
  22. MELATONIN [Concomitant]
     Active Substance: MELATONIN
  23. XYREM [Suspect]
     Active Substance: SODIUM OXYBATE
     Dosage: DOSE ADJUSTMENTS
     Route: 048
  24. XYREM [Suspect]
     Active Substance: SODIUM OXYBATE
     Dosage: DOSE ADJUSTMENTS
     Route: 048
  25. FOLIC ACID. [Concomitant]
     Active Substance: FOLIC ACID
  26. UBIQUINOL [Concomitant]
     Active Substance: UBIQUINOL
  27. CALCIUM [Concomitant]
     Active Substance: CALCIUM
  28. CALCIUM GLUCONATE. [Concomitant]
     Active Substance: CALCIUM GLUCONATE
  29. FAMVIR [Concomitant]
     Active Substance: FAMCICLOVIR
  30. VITAMIN D [Concomitant]
     Active Substance: CHOLECALCIFEROL

REACTIONS (1)
  - Inappropriate schedule of drug administration [Unknown]
